FAERS Safety Report 13408445 (Version 1)
Quarter: 2017Q2

REPORT INFORMATION
  Report Type: Spontaneous
  Country: US (occurrence: US)
  Receive Date: 20170405
  Receipt Date: 20170405
  Transmission Date: 20170830
  Serious: Yes (Other)
  Sender: FDA-Public Use
  Company Number: None

PATIENT
  Age: 61 Year
  Sex: Male
  Weight: 113.8 kg

DRUGS (8)
  1. CAPECITABINE. [Suspect]
     Active Substance: CAPECITABINE
     Indication: COLORECTAL CANCER
     Route: 048
     Dates: start: 20170119, end: 20170405
  2. TAMSULOSIN [Concomitant]
     Active Substance: TAMSULOSIN
  3. ONDASETRON [Concomitant]
     Active Substance: ONDANSETRON
  4. PERIOSTAT [Concomitant]
     Active Substance: DOXYCYCLINE HYCLATE
  5. ALPRAZOLAM. [Concomitant]
     Active Substance: ALPRAZOLAM
  6. ERGOCALCIFEROL. [Concomitant]
     Active Substance: ERGOCALCIFEROL
  7. FINACEA [Concomitant]
     Active Substance: AZELAIC ACID
  8. CYANOCOBALAMINE [Concomitant]
     Active Substance: CYANOCOBALAMIN

REACTIONS (5)
  - Palmar-plantar erythrodysaesthesia syndrome [None]
  - Diplopia [None]
  - Strabismus [None]
  - Myasthenia gravis [None]
  - Eyelid ptosis [None]

NARRATIVE: CASE EVENT DATE: 20170314
